FAERS Safety Report 19774348 (Version 1)
Quarter: 2021Q3

REPORT INFORMATION
  Report Type: Spontaneous
  Country: GB (occurrence: GB)
  Receive Date: 20210901
  Receipt Date: 20210901
  Transmission Date: 20211014
  Serious: Yes (Other)
  Sender: FDA-Public Use
  Company Number: GB-TEVA-2021-GB-1946427

PATIENT
  Age: 67 Year
  Sex: Male
  Weight: 87 kg

DRUGS (5)
  1. FOLIC ACID. [Concomitant]
     Active Substance: FOLIC ACID
     Dosage: 1 DOSAGE FORMS DAILY;
     Dates: start: 20210106, end: 20210720
  2. OTOMIZE [Concomitant]
     Dosage: 3 DOSAGE FORMS DAILY; SPRAY IN THE AFFECTED EAR. SE..
     Dates: start: 20210602, end: 20210609
  3. OMEPRAZOLE. [Concomitant]
     Active Substance: OMEPRAZOLE
     Dosage: TAKE ONE OR TWO DAILY
     Dates: start: 20190729
  4. FLUCLOXACILLIN [Concomitant]
     Active Substance: FLUCLOXACILLIN
     Dosage: 4 DOSAGE FORMS DAILY; 1DF
     Dates: start: 20210819
  5. FINASTERIDE. [Suspect]
     Active Substance: FINASTERIDE
     Dosage: 5 MILLIGRAM DAILY; 5MG
     Route: 048
     Dates: start: 20201204, end: 20210817

REACTIONS (2)
  - Penile exfoliation [Recovered/Resolved]
  - Haemorrhage [Recovered/Resolved]

NARRATIVE: CASE EVENT DATE: 20201204
